FAERS Safety Report 26150491 (Version 2)
Quarter: 2025Q4

REPORT INFORMATION
  Report Type: Report from Study
  Country: ZA (occurrence: ZA)
  Receive Date: 20251212
  Receipt Date: 20251221
  Transmission Date: 20260117
  Serious: Yes (Other)
  Sender: TEVA
  Company Number: ZA-TEVA-VS-3376149

PATIENT
  Age: 39 Year
  Sex: Female
  Weight: 64.3 kg

DRUGS (1)
  1. FINGOLIMOD HYDROCHLORIDE [Suspect]
     Active Substance: FINGOLIMOD HYDROCHLORIDE
     Indication: Multiple sclerosis
     Route: 048
     Dates: start: 20250923

REACTIONS (11)
  - Eye infection viral [Not Recovered/Not Resolved]
  - Influenza like illness [Unknown]
  - Dysgeusia [Not Recovered/Not Resolved]
  - Eye pain [Unknown]
  - Throat irritation [Unknown]
  - Somnolence [Unknown]
  - Sinus congestion [Unknown]
  - Photophobia [Unknown]
  - Ocular hyperaemia [Unknown]
  - Lacrimation increased [Unknown]
  - Eye irritation [Unknown]

NARRATIVE: CASE EVENT DATE: 20250101
